FAERS Safety Report 5691442-5 (Version None)
Quarter: 2008Q1

REPORT INFORMATION
  Report Type: 
  Country: None (occurrence: None)
  Receive Date: 20080331
  Receipt Date: 20080324
  Transmission Date: 20080703
  Serious: Yes (Death)
  Sender: FDA-Public Use
  Company Number: 163-21880-08031604

PATIENT
  Sex: Male

DRUGS (4)
  1. REVLIMID [Suspect]
     Indication: MULTIPLE MYELOMA
     Dosage: 10 MG, QD, ORAL; 25 MG, QD, ORAL; 10 MG, QD, ORAL; 10 MG, QD, ORAL
     Route: 048
     Dates: start: 20070312
  2. REVLIMID [Suspect]
     Indication: MULTIPLE MYELOMA
     Dosage: 10 MG, QD, ORAL; 25 MG, QD, ORAL; 10 MG, QD, ORAL; 10 MG, QD, ORAL
     Route: 048
     Dates: start: 20070507
  3. REVLIMID [Suspect]
     Indication: MULTIPLE MYELOMA
     Dosage: 10 MG, QD, ORAL; 25 MG, QD, ORAL; 10 MG, QD, ORAL; 10 MG, QD, ORAL
     Route: 048
     Dates: start: 20070612
  4. REVLIMID [Suspect]
     Indication: MULTIPLE MYELOMA
     Dosage: 10 MG, QD, ORAL; 25 MG, QD, ORAL; 10 MG, QD, ORAL; 10 MG, QD, ORAL
     Route: 048
     Dates: start: 20070814

REACTIONS (1)
  - GENERAL PHYSICAL HEALTH DETERIORATION [None]
